FAERS Safety Report 9267129 (Version 2)
Quarter: 2014Q1

REPORT INFORMATION
  Report Type: Spontaneous
  Country: US (occurrence: US)
  Receive Date: 20130502
  Receipt Date: 20140203
  Transmission Date: 20141002
  Serious: No
  Sender: FDA-Public Use
  Company Number: US-009507513-1304USA014668

PATIENT
  Sex: Male

DRUGS (6)
  1. VICTRELIS [Suspect]
     Indication: HEPATITIS C
     Dosage: UNK, TREE TIMES A DAY
     Route: 048
     Dates: start: 20130312
  2. VICTRELIS [Suspect]
     Dosage: UNK, TID
     Route: 048
     Dates: end: 20130415
  3. COPEGUS [Suspect]
     Indication: HEPATITIS C
     Dosage: UNK , BID
     Route: 048
     Dates: start: 20130204
  4. COPEGUS [Suspect]
     Dosage: UNK
     Route: 048
     Dates: end: 20130415
  5. PEGASYS [Suspect]
     Indication: HEPATITIS C
     Dosage: UNK, FREQUENCY: Q7DAYS
     Route: 058
     Dates: start: 20130204, end: 20131216
  6. POTASSIUM (UNSPECIFIED) [Concomitant]
     Dosage: DOSE: 1 TABLET, FREQUENCY NOT REPORTED
     Route: 048

REACTIONS (13)
  - White blood cell count decreased [Unknown]
  - Red blood cell count decreased [Unknown]
  - Haemoglobin decreased [Unknown]
  - Ataxia [Unknown]
  - Balance disorder [Unknown]
  - Fatigue [Unknown]
  - Asthenia [Unknown]
  - Psoriasis [Unknown]
  - Muscle spasms [Unknown]
  - Fall [Unknown]
  - Weight decreased [Unknown]
  - Rash [Unknown]
  - Viral load decreased [Unknown]
